FAERS Safety Report 24417285 (Version 1)
Quarter: 2024Q4

REPORT INFORMATION
  Report Type: Spontaneous
  Country: US (occurrence: US)
  Receive Date: 20241009
  Receipt Date: 20241009
  Transmission Date: 20250115
  Serious: Yes (Other)
  Sender: ZYDUS PHARM
  Company Number: US-CADILA HEALTHCARE LIMITED-US-ZYDUS-112922

PATIENT

DRUGS (3)
  1. ERLOTINIB [Suspect]
     Active Substance: ERLOTINIB
     Indication: Non-small cell lung cancer metastatic
     Dosage: 150 MILLIGRAM DAILY FOR 2.5 MONTHS
     Route: 065
  2. AFATINIB [Concomitant]
     Active Substance: AFATINIB
     Indication: Non-small cell lung cancer metastatic
     Dosage: 40 MILLIGRAM, QD
     Route: 065
  3. BEVACIZUMAB [Concomitant]
     Active Substance: BEVACIZUMAB
     Indication: Non-small cell lung cancer metastatic
     Dosage: 15 MILLIGRAM/KILOGRAM
     Route: 065

REACTIONS (3)
  - Paraesthesia [Recovered/Resolved]
  - Rash [Unknown]
  - Rash [Unknown]
